FAERS Safety Report 5966637-3 (Version None)
Quarter: 2008Q4

REPORT INFORMATION
  Report Type: 
  Country: None (occurrence: None)
  Receive Date: 20081125
  Receipt Date: 20080929
  Transmission Date: 20090506
  Serious: No
  Sender: FDA-Public Use
  Company Number: US-AMGEN-KDL309356

PATIENT
  Sex: Male
  Weight: 84.4 kg

DRUGS (4)
  1. ENBREL [Suspect]
     Indication: ANKYLOSING SPONDYLITIS
     Route: 058
     Dates: start: 20061129
  2. CLARITIN [Concomitant]
  3. UNSPECIFIED INHALER [Concomitant]
  4. ADVIL [Concomitant]

REACTIONS (4)
  - ANXIETY [None]
  - DYSPNOEA [None]
  - FLUSHING [None]
  - STRESS [None]
